FAERS Safety Report 23288393 (Version 2)
Quarter: 2023Q4

REPORT INFORMATION
  Report Type: Report from Study
  Country: IT (occurrence: IT)
  Receive Date: 20231212
  Receipt Date: 20231228
  Transmission Date: 20240110
  Serious: Yes (Hospitalization)
  Sender: FDA-Public Use
  Company Number: None

PATIENT
  Age: 57 Year
  Sex: Male

DRUGS (2)
  1. OLANZAPINE [Suspect]
     Active Substance: OLANZAPINE
     Indication: Product used for unknown indication
     Dosage: 15 MILLIGRAM (6 TABLETS OF 2.5 MG) (TOTAL)
     Route: 048
     Dates: start: 20231113, end: 20231113
  2. QUETIAPINE [Suspect]
     Active Substance: QUETIAPINE
     Indication: Product used for unknown indication
     Dosage: 650 MILLIGRAM (2 TABLETS OF 200 MG AND 10 TABLETS OF 25 MG) (TOTAL)
     Route: 048
     Dates: start: 20231113, end: 20231113

REACTIONS (5)
  - Photophobia [Recovering/Resolving]
  - Miosis [Unknown]
  - Drug abuse [Unknown]
  - Treatment noncompliance [Unknown]
  - Intentional product misuse [Unknown]

NARRATIVE: CASE EVENT DATE: 20231113
